FAERS Safety Report 13761654 (Version 2)
Quarter: 2017Q3

REPORT INFORMATION
  Report Type: Report from Study
  Country: US (occurrence: US)
  Receive Date: 20170718
  Receipt Date: 20170914
  Transmission Date: 20171127
  Serious: No
  Sender: FDA-Public Use
  Company Number: US-ELI_LILLY_AND_COMPANY-US201706013792

PATIENT
  Age: 56 Year
  Sex: Female

DRUGS (1)
  1. TERIPARATIDE [Suspect]
     Active Substance: TERIPARATIDE
     Indication: OSTEOPOROSIS
     Dosage: UNK UNK, UNKNOWN
     Route: 065
     Dates: start: 20170214

REACTIONS (14)
  - Thyroid mass [Unknown]
  - Bone pain [Unknown]
  - Rhinorrhoea [Unknown]
  - Heart rate increased [Unknown]
  - Depression [Unknown]
  - Hypotension [Unknown]
  - Upper-airway cough syndrome [Unknown]
  - Visual field defect [Unknown]
  - Arthralgia [Unknown]
  - Insomnia [Unknown]
  - Myalgia [Unknown]
  - Headache [Unknown]
  - Dysphonia [Unknown]
  - Dizziness [Unknown]

NARRATIVE: CASE EVENT DATE: 20170624
